FAERS Safety Report 4364532-7 (Version None)
Quarter: 2004Q2

REPORT INFORMATION
  Report Type: 
  Country: None (occurrence: None)
  Receive Date: 20040521
  Receipt Date: 20040510
  Transmission Date: 20050107
  Serious: Yes (Hospitalization)
  Sender: FDA-Public Use
  Company Number: 2004SP000102

PATIENT
  Age: 64 Year
  Sex: Female
  Weight: 50.8029 kg

DRUGS (10)
  1. XOPENEX [Suspect]
     Indication: CHRONIC OBSTRUCTIVE AIRWAYS DISEASE
     Dosage: 1.25 MG; INHALATION
     Route: 055
     Dates: start: 20040406, end: 20040407
  2. HYDROCHLOROTHIAZIDE [Concomitant]
  3. POTASSIUM CHLORIDE [Concomitant]
  4. MAGNESIUM OXIDE [Concomitant]
  5. MEGACE [Concomitant]
  6. THEOPHYLLINE [Concomitant]
  7. PREVACID [Concomitant]
  8. FLUCONAZOLE [Concomitant]
  9. PANTOPRAZOLE [Concomitant]
  10. METHYLPREDNISOLONE [Concomitant]

REACTIONS (1)
  - CHRONIC OBSTRUCTIVE AIRWAYS DISEASE EXACERBATED [None]
